FAERS Safety Report 15381642 (Version 1)
Quarter: 2018Q3

REPORT INFORMATION
  Report Type: Spontaneous
  Country: US (occurrence: US)
  Receive Date: 20180913
  Receipt Date: 20180913
  Transmission Date: 20181010
  Serious: No
  Sender: FDA-Public Use
  Company Number: US-ASTELLAS-2018US034237

PATIENT
  Sex: Male

DRUGS (1)
  1. XTANDI [Suspect]
     Active Substance: ENZALUTAMIDE
     Indication: PROSTATE CANCER STAGE IV
     Route: 048

REACTIONS (6)
  - Dysphagia [Unknown]
  - Inappropriate schedule of drug administration [Unknown]
  - Throat irritation [Unknown]
  - Sinus disorder [Unknown]
  - Foreign body in respiratory tract [Unknown]
  - Product size issue [Unknown]
